FAERS Safety Report 25210513 (Version 1)
Quarter: 2025Q2

REPORT INFORMATION
  Report Type: Spontaneous
  Country: ES (occurrence: ES)
  Receive Date: 20250417
  Receipt Date: 20250417
  Transmission Date: 20250716
  Serious: Yes (Hospitalization)
  Sender: MYLAN
  Company Number: None

PATIENT
  Age: 77 Year
  Sex: Female

DRUGS (24)
  1. ALPRAZOLAM [Interacting]
     Active Substance: ALPRAZOLAM
     Indication: Anxiety
  2. ALPRAZOLAM [Interacting]
     Active Substance: ALPRAZOLAM
     Route: 048
  3. ALPRAZOLAM [Interacting]
     Active Substance: ALPRAZOLAM
     Route: 048
  4. ALPRAZOLAM [Interacting]
     Active Substance: ALPRAZOLAM
  5. LORMETAZEPAM [Interacting]
     Active Substance: LORMETAZEPAM
     Indication: Anxiety
     Dates: start: 20231222, end: 20250328
  6. LORMETAZEPAM [Interacting]
     Active Substance: LORMETAZEPAM
     Route: 048
     Dates: start: 20231222, end: 20250328
  7. LORMETAZEPAM [Interacting]
     Active Substance: LORMETAZEPAM
     Route: 048
     Dates: start: 20231222, end: 20250328
  8. LORMETAZEPAM [Interacting]
     Active Substance: LORMETAZEPAM
     Dates: start: 20231222, end: 20250328
  9. PALEXIA [Interacting]
     Active Substance: TAPENTADOL HYDROCHLORIDE
     Indication: Pain
     Dates: start: 20210902, end: 20250328
  10. PALEXIA [Interacting]
     Active Substance: TAPENTADOL HYDROCHLORIDE
     Route: 048
     Dates: start: 20210902, end: 20250328
  11. PALEXIA [Interacting]
     Active Substance: TAPENTADOL HYDROCHLORIDE
     Route: 048
     Dates: start: 20210902, end: 20250328
  12. PALEXIA [Interacting]
     Active Substance: TAPENTADOL HYDROCHLORIDE
     Dates: start: 20210902, end: 20250328
  13. PALEXIA [Interacting]
     Active Substance: TAPENTADOL HYDROCHLORIDE
     Indication: Pain
     Dates: start: 20250317, end: 20250328
  14. PALEXIA [Interacting]
     Active Substance: TAPENTADOL HYDROCHLORIDE
     Route: 048
     Dates: start: 20250317, end: 20250328
  15. PALEXIA [Interacting]
     Active Substance: TAPENTADOL HYDROCHLORIDE
     Route: 048
     Dates: start: 20250317, end: 20250328
  16. PALEXIA [Interacting]
     Active Substance: TAPENTADOL HYDROCHLORIDE
     Dates: start: 20250317, end: 20250328
  17. PALEXIA [Interacting]
     Active Substance: TAPENTADOL HYDROCHLORIDE
     Indication: Pain
     Dates: start: 20180410, end: 20250328
  18. PALEXIA [Interacting]
     Active Substance: TAPENTADOL HYDROCHLORIDE
     Route: 048
     Dates: start: 20180410, end: 20250328
  19. PALEXIA [Interacting]
     Active Substance: TAPENTADOL HYDROCHLORIDE
     Route: 048
     Dates: start: 20180410, end: 20250328
  20. PALEXIA [Interacting]
     Active Substance: TAPENTADOL HYDROCHLORIDE
     Dates: start: 20180410, end: 20250328
  21. PREGABALIN [Interacting]
     Active Substance: PREGABALIN
     Indication: Pain
  22. PREGABALIN [Interacting]
     Active Substance: PREGABALIN
     Route: 048
  23. PREGABALIN [Interacting]
     Active Substance: PREGABALIN
     Route: 048
  24. PREGABALIN [Interacting]
     Active Substance: PREGABALIN

REACTIONS (2)
  - Confusional state [Recovered/Resolved]
  - Drug interaction [Unknown]

NARRATIVE: CASE EVENT DATE: 20250320
